FAERS Safety Report 9261603 (Version 2)
Quarter: 2013Q2

REPORT INFORMATION
  Report Type: Spontaneous
  Country: JP (occurrence: JP)
  Receive Date: 20130429
  Receipt Date: 20130507
  Transmission Date: 20140414
  Serious: Yes (Other)
  Sender: FDA-Public Use
  Company Number: JP-ASTRAZENECA-2013SE16837

PATIENT
  Age: 45 Year
  Sex: Female

DRUGS (16)
  1. SEROQUEL [Suspect]
     Indication: SCHIZOPHRENIA
     Route: 048
  2. ROHYPNOL [Concomitant]
  3. BROTIZOLAM [Concomitant]
  4. ROZEREM [Concomitant]
  5. GABAPEN [Concomitant]
  6. GASMOTIN [Concomitant]
  7. U PAN [Concomitant]
  8. PANTOSIN [Concomitant]
  9. MAGLAX [Concomitant]
  10. LAXOBERON [Concomitant]
  11. DEPAKENE [Concomitant]
  12. LIMAS [Concomitant]
  13. VITAMEDIN [Concomitant]
  14. BIOFERMIN [Concomitant]
  15. JUVELA N [Concomitant]
  16. CINAL [Concomitant]

REACTIONS (1)
  - Uterine leiomyoma [Recovered/Resolved]
